FAERS Safety Report 11603400 (Version 1)
Quarter: 2015Q4

REPORT INFORMATION
  Report Type: Spontaneous
  Country: IT (occurrence: IT)
  Receive Date: 20151007
  Receipt Date: 20151007
  Transmission Date: 20160304
  Serious: Yes (Other)
  Sender: FDA-Public Use
  Company Number: IT-AMGEN-ITASP2015102626

PATIENT
  Age: 79 Year
  Sex: Male
  Weight: 72 kg

DRUGS (2)
  1. XGEVA [Suspect]
     Active Substance: DENOSUMAB
     Indication: LUNG ADENOCARCINOMA METASTATIC
     Dosage: 120 MG, CYCLIC
     Route: 058
     Dates: start: 20140214
  2. IRESSA [Suspect]
     Active Substance: GEFITINIB
     Indication: LUNG ADENOCARCINOMA METASTATIC
     Dosage: 250 MG, QD
     Route: 048
     Dates: start: 20140609

REACTIONS (3)
  - Leukopenia [Unknown]
  - Thrombocytopenia [Unknown]
  - Neutropenia [Unknown]

NARRATIVE: CASE EVENT DATE: 20150930
